FAERS Safety Report 5102720-2 (Version None)
Quarter: 2006Q3

REPORT INFORMATION
  Report Type: 
  Country: None (occurrence: None)
  Receive Date: 20060907
  Receipt Date: 20060307
  Transmission Date: 20061208
  Serious: Yes (Other)
  Sender: FDA-Public Use
  Company Number: 805#1#2006-00010

PATIENT
  Age: 15 Day
  Sex: Male

DRUGS (9)
  1. ALPROSTADIL [Suspect]
     Indication: HEART DISEASE CONGENITAL
     Dosage: INTRAVENOUS DRIP
     Route: 041
     Dates: start: 20050623, end: 20060711
  2. DOPAMINE HCL [Concomitant]
  3. SULTAMICILLIN TOSILATE (AMPICILLIN SODIUM, SULBACTAM SODIUM) [Concomitant]
  4. MIDAZOLAM HCL (MIDAZOLAM HCL) [Concomitant]
  5. FENTANYL CITRATE [Concomitant]
  6. VECUCONIUM BROMIDE (VECURONIUM BROMIDE) [Concomitant]
  7. FUROSEMIDE [Concomitant]
  8. FLOMOXEF SODIUM (FLOMOXEF SODIUM) [Concomitant]
  9. SPIRONOLACTONE [Concomitant]

REACTIONS (1)
  - TACHYPNOEA [None]
